FAERS Safety Report 22044720 (Version 2)
Quarter: 2023Q2

REPORT INFORMATION
  Report Type: Spontaneous
  Country: AT (occurrence: AT)
  Receive Date: 20230228
  Receipt Date: 20230409
  Transmission Date: 20230722
  Serious: Yes (Other)
  Sender: FDA-Public Use
  Company Number: AT-BAXTER-2023BAX013839

PATIENT
  Age: 56 Year
  Sex: Male

DRUGS (19)
  1. DOXORUBICIN [Suspect]
     Active Substance: DOXORUBICIN
     Indication: Plasma cell myeloma
     Dosage: INJECTION
     Route: 065
     Dates: start: 201403
  2. CYCLOPHOSPHAMIDE [Suspect]
     Active Substance: CYCLOPHOSPHAMIDE
     Indication: Blood stem cell harvest
     Dosage: UNK
     Route: 065
     Dates: start: 201510
  3. BORTEZOMIB [Suspect]
     Active Substance: BORTEZOMIB
     Indication: Plasma cell myeloma
     Dosage: UNK (FOUR CYCLES)
     Route: 065
     Dates: start: 201403
  4. BORTEZOMIB [Suspect]
     Active Substance: BORTEZOMIB
     Dosage: (TWO CYCLES OF BORTEZOMIB/DEXAMETHASONE)
     Route: 065
     Dates: start: 201504, end: 201509
  5. BORTEZOMIB [Suspect]
     Active Substance: BORTEZOMIB
     Dosage: UNK 4 CYCLES OF BORTEZOMIB/BENDAMUSTIN/PREDNISOLON
     Route: 065
     Dates: start: 201504, end: 201509
  6. VELCADE [Suspect]
     Active Substance: BORTEZOMIB
     Indication: Plasma cell myeloma
     Dosage: INJECTION
     Route: 065
     Dates: start: 201403
  7. DEXAMETHASONE [Suspect]
     Active Substance: DEXAMETHASONE
     Indication: Plasma cell myeloma
     Dosage: UNK
     Route: 065
     Dates: start: 201403
  8. XGEVA [Concomitant]
     Active Substance: DENOSUMAB
     Dosage: UNK
     Route: 065
     Dates: start: 201808
  9. CARFILZOMIB [Concomitant]
     Active Substance: CARFILZOMIB
     Indication: Plasma cell myeloma refractory
     Dosage: UNK
     Route: 065
     Dates: start: 20151229
  10. DEXAMETHASONE [Concomitant]
     Active Substance: DEXAMETHASONE
     Indication: Plasma cell myeloma refractory
     Dosage: UNK
     Route: 065
     Dates: start: 201408, end: 201501
  11. DEXAMETHASONE [Concomitant]
     Active Substance: DEXAMETHASONE
     Dosage: (FOUR CYCLES)
     Route: 065
  12. DEXAMETHASONE [Concomitant]
     Active Substance: DEXAMETHASONE
     Dosage: (TWO CYCLES OF BORTEZOMIB/DEXAMETHASONE)
     Route: 065
     Dates: start: 201504, end: 201509
  13. DOXORUBICIN HYDROCHLORIDE [Concomitant]
     Active Substance: DOXORUBICIN HYDROCHLORIDE
     Dosage: (FOUR CYCLES)
     Route: 065
     Dates: start: 201403
  14. ZOLEDRONIC ACID [Concomitant]
     Active Substance: ZOLEDRONIC ACID
     Dosage: UNK
     Route: 065
  15. PLERIXAFOR [Concomitant]
     Active Substance: PLERIXAFOR
     Dosage: UNK
     Route: 065
  16. PREDNISOLONE [Concomitant]
     Active Substance: PREDNISOLONE
     Dosage: 4 CYCLE BORTEZOMIB/ BENDAMUSTINE PREDNISOLON
     Route: 065
     Dates: start: 201504, end: 201509
  17. BENDAMUSTINE [Concomitant]
     Active Substance: BENDAMUSTINE
     Dosage: UNK 4 CYCLE OF BORTEZOMIB/BENDAMUSTINE/PREDNISOLON
     Route: 065
     Dates: start: 201504, end: 201504
  18. LENALIDOMIDE [Concomitant]
     Active Substance: LENALIDOMIDE
     Indication: Plasma cell myeloma refractory
     Dosage: SECOND-LINE THERAPY
     Route: 065
     Dates: start: 201408, end: 201501
  19. LENALIDOMIDE [Concomitant]
     Active Substance: LENALIDOMIDE
     Dosage: (TWO CYCLES )
     Route: 065
     Dates: start: 20151229

REACTIONS (4)
  - Bone marrow infiltration [Unknown]
  - Therapy non-responder [Unknown]
  - Stress [Unknown]
  - Drug ineffective [Unknown]

NARRATIVE: CASE EVENT DATE: 20140701
